FAERS Safety Report 16866021 (Version 1)
Quarter: 2019Q3

REPORT INFORMATION
  Report Type: Spontaneous
  Country: BR (occurrence: BR)
  Receive Date: 20190930
  Receipt Date: 20190930
  Transmission Date: 20191005
  Serious: Yes (Other)
  Sender: FDA-Public Use
  Company Number: BR-009507513-1909BRA012292

PATIENT
  Sex: Male
  Weight: 108 kg

DRUGS (2)
  1. SIMVASTATIN. [Suspect]
     Active Substance: SIMVASTATIN
     Indication: BLOOD CHOLESTEROL INCREASED
     Dosage: UNK
     Route: 048
     Dates: start: 2011
  2. IRBESARTAN. [Concomitant]
     Active Substance: IRBESARTAN
     Indication: HYPERTENSION
     Dosage: 1 TABLET QAM
     Route: 048

REACTIONS (1)
  - Type 2 diabetes mellitus [Unknown]
